FAERS Safety Report 7043870-3 (Version None)
Quarter: 2010Q4

REPORT INFORMATION
  Report Type: 
  Country: None (occurrence: None)
  Receive Date: 20101012
  Receipt Date: 20101012
  Transmission Date: 20110411
  Serious: Yes (Hospitalization)
  Sender: FDA-Public Use
  Company Number: None

PATIENT
  Age: 56 Year
  Sex: Female
  Weight: 61.2356 kg

DRUGS (2)
  1. PROPOXYPHENE HCL AND ACETAMINOPHEN [Suspect]
     Indication: PAIN
     Dosage: 1 TABLE EVERY 4 HOURS PO
     Route: 048
     Dates: start: 20101002, end: 20101013
  2. AMOXICILLIN [Concomitant]

REACTIONS (1)
  - VERTIGO [None]
